FAERS Safety Report 15736536 (Version 2)
Quarter: 2019Q1

REPORT INFORMATION
  Report Type: Spontaneous
  Country: SI (occurrence: SI)
  Receive Date: 20181218
  Receipt Date: 20190107
  Transmission Date: 20190417
  Serious: Yes (Other)
  Sender: FDA-Public Use
  Company Number: SI-BAYER-2018-234875

PATIENT
  Age: 34 Year
  Sex: Female

DRUGS (1)
  1. JAYDESS [Suspect]
     Active Substance: LEVONORGESTREL
     Dosage: 14 MCG/24HR, CONT
     Route: 015
     Dates: start: 20171130, end: 20181122

REACTIONS (4)
  - Abdominal pain lower [None]
  - Drug ineffective [None]
  - Pregnancy with contraceptive device [Recovered/Resolved]
  - Syncope [None]

NARRATIVE: CASE EVENT DATE: 20181117
